FAERS Safety Report 19448689 (Version 1)
Quarter: 2021Q2

REPORT INFORMATION
  Report Type: Spontaneous
  Country: US (occurrence: US)
  Receive Date: 20210622
  Receipt Date: 20210622
  Transmission Date: 20210717
  Serious: Yes (Other)
  Sender: FDA-Public Use
  Company Number: US-GLAXOSMITHKLINE-US2021GSK129395

PATIENT
  Age: 48 Year
  Sex: Female

DRUGS (2)
  1. PHENTERMINE. [Concomitant]
     Active Substance: PHENTERMINE
     Indication: PRODUCT USED FOR UNKNOWN INDICATION
     Dosage: UNK
  2. BUPROPION. [Suspect]
     Active Substance: BUPROPION
     Indication: DEPRESSION
     Dosage: UNK

REACTIONS (6)
  - Lupus-like syndrome [Recovered/Resolved]
  - Rash [Recovered/Resolved]
  - Skin lesion [Recovered/Resolved]
  - Dermatitis [Recovered/Resolved]
  - Sunburn [Recovered/Resolved]
  - Inflammation [Recovered/Resolved]
